FAERS Safety Report 5060346-3 (Version None)
Quarter: 2006Q3

REPORT INFORMATION
  Report Type: 
  Country: None (occurrence: None)
  Receive Date: 20060718
  Receipt Date: 20060705
  Transmission Date: 20061208
  Serious: Yes (Death)
  Sender: FDA-Public Use
  Company Number: 2005-01921

PATIENT
  Age: 61 Year
  Sex: Female
  Weight: 44 kg

DRUGS (3)
  1. VELCADE [Suspect]
     Indication: NON-SMALL CELL LUNG CANCER
     Dosage: 1.00 MG/M2, UNK, IV BOLUS
     Route: 040
     Dates: start: 20040810, end: 20040910
  2. GEMCITABINE HYDROCHLORIDE (GEMCITABINE HYDROCHLORIDE) [Suspect]
     Indication: NON-SMALL CELL LUNG CANCER
     Dosage: 1000.00 MG/M2, UNK, INTRAVENOUS
     Route: 042
     Dates: start: 20040810, end: 20040907
  3. CARBOPLATIN [Suspect]
     Indication: NON-SMALL CELL LUNG CANCER
     Dosage: 5.00, INTRAVENOUS
     Route: 042
     Dates: start: 20040810, end: 20040831

REACTIONS (1)
  - DISEASE PROGRESSION [None]
